FAERS Safety Report 4769836-1 (Version None)
Quarter: 2005Q3

REPORT INFORMATION
  Report Type: 
  Country: None (occurrence: None)
  Receive Date: 20050912
  Receipt Date: 20050701
  Transmission Date: 20060218
  Serious: No
  Sender: FDA-Public Use
  Company Number: 2005-00495

PATIENT
  Age: 67 Year
  Sex: Female
  Weight: 70.3 kg

DRUGS (18)
  1. VELCADE [Suspect]
     Indication: MULTIPLE MYELOMA
     Dosage: 2.50 MG
     Dates: start: 20050201, end: 20050510
  2. DEXAMETHASONE [Suspect]
  3. DIFLUCAN [Concomitant]
  4. ALLEGRA [Concomitant]
  5. AVANDIA [Concomitant]
  6. LOPRESSOR [Concomitant]
  7. VASOTEC [Concomitant]
  8. COUMADIN (WARARIN SODIUM) [Concomitant]
  9. PEPCID [Concomitant]
  10. FIORICET [Concomitant]
  11. KYTRIL [Concomitant]
  12. ZOFRAN [Concomitant]
  13. NEURONTIN [Concomitant]
  14. VITAMIN B6 [Concomitant]
  15. VICODIN [Concomitant]
  16. PHENERGAN (PROMETHAZINE HYDROCHLROIDE) [Concomitant]
  17. RESTORIL [Concomitant]
  18. CHEMOTHERAPY [Suspect]

REACTIONS (7)
  - DECREASED APPETITE [None]
  - FATIGUE [None]
  - HEADACHE [None]
  - NAUSEA [None]
  - PYREXIA [None]
  - SOMNOLENCE [None]
  - TREMOR [None]
